FAERS Safety Report 5891856-4 (Version None)
Quarter: 2008Q3

REPORT INFORMATION
  Report Type: 
  Country: None (occurrence: None)
  Receive Date: 20080922
  Receipt Date: 20080910
  Transmission Date: 20090109
  Serious: Yes (Hospitalization)
  Sender: FDA-Public Use
  Company Number: AU-PFIZER INC-2008076889

PATIENT
  Sex: Female
  Weight: 60 kg

DRUGS (4)
  1. DOXORUBICIN HCL [Suspect]
     Indication: BREAST CANCER
     Dosage: DAILY DOSE:82MG
     Dates: start: 20071203
  2. CYCLOPHOSPHAMIDE [Suspect]
     Indication: BREAST CANCER
     Dosage: DAILY DOSE:820MG
     Dates: start: 20071203
  3. NEULASTA [Suspect]
     Indication: CHEMOTHERAPY
     Dosage: DAILY DOSE:6MG-FREQ:ONCE IN 21 DAYS
     Route: 058
     Dates: start: 20071204, end: 20071204
  4. DOCETAXEL [Suspect]
     Indication: BREAST CANCER
     Dosage: DAILY DOSE:130MG
     Dates: start: 20071203

REACTIONS (2)
  - DRUG INEFFECTIVE [None]
  - FEBRILE NEUTROPENIA [None]
